FAERS Safety Report 7262307-2 (Version None)
Quarter: 2011Q1

REPORT INFORMATION
  Report Type: 
  Country: None (occurrence: None)
  Receive Date: 20110130
  Receipt Date: 20101123
  Transmission Date: 20110831
  Serious: Yes (Hospitalization)
  Sender: FDA-Public Use
  Company Number: US-ABBOTT-10P-163-0685647-00

PATIENT
  Sex: Female
  Weight: 139.83 kg

DRUGS (36)
  1. ACTONEL [Concomitant]
     Indication: PROPHYLAXIS
     Route: 048
  2. FOLIC ACID [Concomitant]
     Indication: VITAMIN SUPPLEMENTATION
     Route: 048
  3. METHOCARBAMOL [Concomitant]
     Indication: POST THROMBOTIC SYNDROME
     Dosage: FOUR TIMES A DAY AS NEEDED
     Route: 048
  4. GLUCOSAMINE/CHONDROITIN [Concomitant]
     Indication: SUPPLEMENTATION THERAPY
     Dosage: 1500/1200 W/D TWICE A DAY
     Route: 048
  5. COUMADIN [Concomitant]
     Indication: THROMBOSIS
     Dosage: MWF  1/2 TAB REST OF WEEK
     Route: 048
  6. POTASSIUM CHLORIDE [Concomitant]
     Indication: MINERAL SUPPLEMENTATION
  7. PREDNISONE [Concomitant]
     Indication: POST THROMBOTIC SYNDROME
     Dosage: TAPER
     Route: 048
     Dates: start: 20101101
  8. BLACK COHOSH [Concomitant]
     Indication: PHYTOTHERAPY
     Dosage: AT BEDTIME
     Route: 048
  9. DOCUSATE STOOL SOFTENER [Concomitant]
     Indication: CONSTIPATION PROPHYLAXIS
     Dosage: EQUATE  BRAND
     Route: 048
  10. HUMIRA [Suspect]
     Route: 058
     Dates: start: 20100901
  11. FISH OIL [Concomitant]
     Indication: SUPPLEMENTATION THERAPY
     Route: 048
  12. NAPROXEN [Concomitant]
     Indication: POST THROMBOTIC SYNDROME
     Route: 048
  13. PENTOXIFYLLINE [Concomitant]
     Indication: PERIPHERAL ARTERIAL OCCLUSIVE DISEASE
     Dosage: TRENTAL
     Route: 048
  14. BUPROPRION XL [Concomitant]
     Indication: DEPRESSION
     Route: 048
  15. HYDROCODONE BITARTRATE + ACETAMINOPHEN [Concomitant]
     Indication: VENOUS ULCER PAIN
     Dosage: 5/500 FOUR TIMES A DAY AS NEEDED
     Route: 048
     Dates: start: 20080101
  16. OMEPRAZOLE [Concomitant]
     Indication: PROPHYLAXIS AGAINST GASTROINTESTINAL ULCER
     Route: 048
     Dates: start: 20090301
  17. VENLAFAXINE [Concomitant]
     Indication: DEPRESSION
     Route: 048
  18. POTASSIUM CHLORIDE [Concomitant]
     Indication: BLOOD POTASSIUM DECREASED
     Route: 048
     Dates: start: 20090901
  19. COLCHICINE [Concomitant]
     Indication: CHONDROCALCINOSIS PYROPHOSPHATE
     Route: 048
  20. CYCLOBENZAPRINE [Concomitant]
     Indication: MUSCLE RELAXANT THERAPY
     Dosage: 1 AT BEDTIME
     Route: 048
  21. AMITRIPTYLINE HCL [Concomitant]
     Indication: INSOMNIA
     Route: 048
  22. HUMIRA [Suspect]
     Indication: POST THROMBOTIC SYNDROME
     Route: 058
     Dates: start: 20101115
  23. ACTONEL [Concomitant]
     Indication: STEROID THERAPY
  24. MULTI-VITAMIN [Concomitant]
     Indication: VITAMIN SUPPLEMENTATION
     Route: 048
  25. MELATONIN [Concomitant]
     Indication: PHYTOTHERAPY
     Route: 048
  26. TRIAMCINOLONE/PUREL LOTION [Concomitant]
     Indication: SKIN ULCER
     Dosage: COMPOUND  80GM
     Route: 061
     Dates: start: 20100201
  27. FERROUS SULFATE TAB [Concomitant]
     Indication: MINERAL SUPPLEMENTATION
     Route: 048
     Dates: start: 20090101
  28. VITAMIN B COMPLEX W/ C [Concomitant]
     Indication: VITAMIN SUPPLEMENTATION
     Route: 048
  29. VITAMIN E [Concomitant]
     Indication: VITAMIN SUPPLEMENTATION
     Route: 048
  30. METOPROLOL SUCC XL [Concomitant]
     Indication: HYPERTENSION
     Route: 048
  31. FENTANYL-100 [Concomitant]
     Dosage: ALONG WITH 25MG PATCH
     Route: 061
  32. FUROSEMIDE [Concomitant]
     Indication: FLUID RETENTION
     Route: 048
     Dates: start: 20090101
  33. ALLOPURINOL [Concomitant]
     Indication: CHONDROCALCINOSIS PYROPHOSPHATE
     Route: 048
  34. METOLAZONE [Concomitant]
     Indication: DIURETIC THERAPY
     Route: 048
     Dates: start: 20091001
  35. FENTANYL-100 [Concomitant]
     Indication: VENOUS ULCER PAIN
     Dosage: ALONG 12MG PATCH
     Route: 061
  36. CALCIUM W/D [Concomitant]
     Indication: MINERAL SUPPLEMENTATION
     Route: 048

REACTIONS (2)
  - DRUG INEFFECTIVE [None]
  - CELLULITIS [None]
